FAERS Safety Report 9339690 (Version 2)
Quarter: 2013Q3

REPORT INFORMATION
  Report Type: Report from Study
  Country: IT (occurrence: IT)
  Receive Date: 20130610
  Receipt Date: 20130909
  Transmission Date: 20140515
  Serious: Yes (Other)
  Sender: FDA-Public Use
  Company Number: IT-CELGENEUS-083-21880-13054500

PATIENT
  Age: 65 Year
  Sex: Female
  Weight: 88 kg

DRUGS (7)
  1. REVLIMID [Suspect]
     Indication: PLASMA CELL MYELOMA
     Dosage: 10 MILLIGRAM
     Route: 048
     Dates: start: 20130508
  2. ENALAPRYL [Concomitant]
     Indication: HYPERTENSION
     Dosage: 20 MILLIGRAM
     Route: 065
  3. CLONAZEPAM [Concomitant]
     Indication: ANXIETY
     Dosage: 5 DROPS
     Route: 048
     Dates: start: 201209
  4. LEVOTIROXINA [Concomitant]
     Indication: THYROIDECTOMY
     Dosage: 125 MILLIGRAM
     Route: 048
     Dates: start: 2005
  5. LAMIVUDINA [Concomitant]
     Indication: ANTIVIRAL PROPHYLAXIS
     Route: 048
     Dates: start: 201202
  6. RABEPRAZOLE [Concomitant]
     Indication: PROPHYLAXIS
     Dosage: 20 MILLIGRAM
     Route: 048
     Dates: start: 201202
  7. LISINE SALICATE [Concomitant]
     Indication: THROMBOSIS PROPHYLAXIS
     Dosage: 75 MILLIGRAM
     Route: 065
     Dates: start: 20120507

REACTIONS (1)
  - Transient global amnesia [Recovered/Resolved]
